FAERS Safety Report 15069373 (Version 1)
Quarter: 2018Q2

REPORT INFORMATION
  Report Type: Spontaneous
  Country: US (occurrence: US)
  Receive Date: 20180626
  Receipt Date: 20180626
  Transmission Date: 20180711
  Serious: No
  Sender: FDA-Public Use
  Company Number: US-AMGEN-USASP2010003830

PATIENT
  Sex: Male

DRUGS (4)
  1. NEULASTA [Suspect]
     Active Substance: PEGFILGRASTIM
     Indication: CHEMOTHERAPY
  2. PREDNISONE. [Concomitant]
     Active Substance: PREDNISONE
  3. MORPHINE [Concomitant]
     Active Substance: MORPHINE
     Dosage: 120 MG, BID
  4. MORPHINE [Concomitant]
     Active Substance: MORPHINE
     Dosage: 30 MG, QD

REACTIONS (2)
  - Diarrhoea [Unknown]
  - Nausea [Unknown]
